FAERS Safety Report 7750161-1 (Version None)
Quarter: 2011Q3

REPORT INFORMATION
  Report Type: 
  Country: None (occurrence: None)
  Receive Date: 20110914
  Receipt Date: 20110914
  Transmission Date: 20111222
  Serious: Yes (Life-Threatening)
  Sender: FDA-Public Use
  Company Number: None

PATIENT
  Age: 49 Year
  Sex: Male
  Weight: 90.718 kg

DRUGS (1)
  1. LUNESTA [Suspect]
     Indication: INSOMNIA
     Dosage: 1 MG.MOVED UP TO 2 MG.3/1/2011
     Route: 048
     Dates: start: 20100108, end: 20100316

REACTIONS (3)
  - AGITATION [None]
  - ELECTROCARDIOGRAM ABNORMAL [None]
  - LOSS OF EMPLOYMENT [None]
